FAERS Safety Report 6609386-0 (Version None)
Quarter: 2010Q1

REPORT INFORMATION
  Report Type: 
  Country: None (occurrence: None)
  Receive Date: 20100302
  Receipt Date: 20100224
  Transmission Date: 20100710
  Serious: Yes (Hospitalization)
  Sender: FDA-Public Use
  Company Number: IT-TEVA-225647ISR

PATIENT
  Sex: Female

DRUGS (13)
  1. VINCRISTINE [Suspect]
     Indication: NON-HODGKIN'S LYMPHOMA
     Route: 042
     Dates: start: 20091210, end: 20091210
  2. ATENOLOL [Concomitant]
     Route: 048
  3. PANTOPRAZOLE [Concomitant]
     Route: 048
  4. ALLOPURINOL [Concomitant]
     Route: 048
  5. CYCLOPHOSPHAMIDE [Concomitant]
     Route: 042
     Dates: start: 20091210, end: 20091210
  6. DOXAZOSIN MESYLATE [Concomitant]
     Route: 048
  7. LISINOPRIL [Concomitant]
     Route: 048
  8. LEVOTHYROXINE [Concomitant]
     Route: 048
  9. BROMAZEPAM [Concomitant]
     Route: 048
  10. GALENIC /DORZOLAMIDE/TIMOLOL/ [Concomitant]
     Dosage: 2%-0.5%
  11. LATANOPROST [Concomitant]
  12. OFLOXACIN [Concomitant]
  13. PREDNISONE [Concomitant]
     Route: 048

REACTIONS (1)
  - LARGE INTESTINAL OBSTRUCTION [None]
